FAERS Safety Report 19401697 (Version 1)
Quarter: 2021Q2

REPORT INFORMATION
  Report Type: Spontaneous
  Country: US (occurrence: US)
  Receive Date: 20210611
  Receipt Date: 20210611
  Transmission Date: 20210717
  Serious: No
  Sender: FDA-Public Use
  Company Number: US-SA-2021SA169504

PATIENT
  Sex: Male
  Weight: 98 kg

DRUGS (6)
  1. ZESTRIL [Concomitant]
     Active Substance: LISINOPRIL
     Dosage: 5MG
  2. PLAVIX [Suspect]
     Active Substance: CLOPIDOGREL BISULFATE
  3. ASPIRINE [Concomitant]
     Active Substance: ASPIRIN
     Dosage: 75MG
  4. EPIPEN [Concomitant]
     Active Substance: EPINEPHRINE
     Indication: ARTHROPOD STING
     Dosage: AS NEEDED
  5. FUROSEMIDE. [Concomitant]
     Active Substance: FUROSEMIDE
     Dosage: AS NEEDED
  6. ELIQUIS [Suspect]
     Active Substance: APIXABAN
     Indication: AORTIC VALVE REPLACEMENT
     Route: 048

REACTIONS (4)
  - Muscular weakness [Unknown]
  - Heart valve replacement [Unknown]
  - Eating disorder [Unknown]
  - Weight decreased [Unknown]
